FAERS Safety Report 14308235 (Version 4)
Quarter: 2018Q3

REPORT INFORMATION
  Report Type: Report from Study
  Country: US (occurrence: US)
  Receive Date: 20171220
  Receipt Date: 20180712
  Transmission Date: 20181010
  Serious: Yes (Hospitalization)
  Sender: FDA-Public Use
  Company Number: US-ACTELION-A-NJ2017-164476

PATIENT
  Age: 81 Year
  Sex: Female
  Weight: 92.52 kg

DRUGS (1)
  1. TRACLEER [Suspect]
     Active Substance: BOSENTAN
     Indication: PULMONARY ARTERIAL HYPERTENSION
     Dosage: 125 MG, BID
     Route: 048

REACTIONS (13)
  - Surgery [Unknown]
  - Loss of consciousness [Recovered/Resolved]
  - Fall [Recovering/Resolving]
  - Sleep study abnormal [Unknown]
  - Head injury [Recovered/Resolved]
  - Kidney infection [Unknown]
  - Urinary tract infection [Unknown]
  - Upper airway obstruction [Recovered/Resolved]
  - Contusion [Recovered/Resolved]
  - Diarrhoea [Unknown]
  - Upper limb fracture [Recovering/Resolving]
  - Implantable defibrillator insertion [Unknown]
  - Choking [Recovered/Resolved]

NARRATIVE: CASE EVENT DATE: 20180502
